FAERS Safety Report 11120754 (Version 1)
Quarter: 2015Q2

REPORT INFORMATION
  Report Type: Spontaneous
  Country: US (occurrence: US)
  Receive Date: 20150519
  Receipt Date: 20150519
  Transmission Date: 20150821
  Serious: No
  Sender: FDA-Public Use
  Company Number: US-BAYER-2015-243249

PATIENT
  Age: 91 Year
  Sex: Female
  Weight: 56.24 kg

DRUGS (2)
  1. ALEVE [Suspect]
     Active Substance: NAPROXEN SODIUM
     Indication: ARTHRITIS
     Dosage: 2 DF, BID
     Route: 048
     Dates: start: 2005
  2. POTASSIUM ACETATE. [Concomitant]
     Active Substance: POTASSIUM ACETATE
     Dosage: UNK

REACTIONS (2)
  - Off label use [None]
  - Off label use [Unknown]

NARRATIVE: CASE EVENT DATE: 2005
